FAERS Safety Report 5331427-1 (Version None)
Quarter: 2007Q2

REPORT INFORMATION
  Report Type: 
  Country: None (occurrence: None)
  Receive Date: 20070522
  Receipt Date: 20070514
  Transmission Date: 20071010
  Serious: Yes (Hospitalization, Disabling)
  Sender: FDA-Public Use
  Company Number: TH-ASTRAZENECA-2007AC00895

PATIENT
  Age: 25 Year
  Sex: Male

DRUGS (4)
  1. QUETIAPINE FUMARATE [Suspect]
     Indication: SCHIZOPHRENIA
  2. QUETIAPINE FUMARATE [Suspect]
     Indication: DEPRESSION
  3. VARIOUS ANTIPSYCHOTIC DRUGS [Suspect]
     Indication: SCHIZOPHRENIA
  4. VARIOUS ANTIPSYCHOTIC DRUGS [Suspect]
     Indication: DEPRESSION

REACTIONS (4)
  - AGGRESSION [None]
  - DEPRESSION [None]
  - DYSTONIA [None]
  - TOURETTE'S DISORDER [None]
